FAERS Safety Report 5740897-6 (Version None)
Quarter: 2008Q2

REPORT INFORMATION
  Report Type: 
  Country: None (occurrence: None)
  Receive Date: 20080516
  Receipt Date: 20080421
  Transmission Date: 20081010
  Serious: No
  Sender: FDA-Public Use
  Company Number: US-BOEHRINGER INGELHEIM GMBH, GERMANY-2008-BP-06235BP

PATIENT
  Age: 70 Year
  Sex: Male

DRUGS (5)
  1. SPIRIVA [Suspect]
     Indication: CHRONIC OBSTRUCTIVE PULMONARY DISEASE
     Route: 055
     Dates: start: 20020101
  2. ADVAIR DISKUS 100/50 [Concomitant]
     Route: 055
  3. SINGULAIR [Concomitant]
  4. XOPENEX [Concomitant]
  5. OXYGEN [Concomitant]

REACTIONS (1)
  - DYSPNOEA [None]
